FAERS Safety Report 18609753 (Version 7)
Quarter: 2021Q1

REPORT INFORMATION
  Report Type: Other
  Country: GB (occurrence: GB)
  Receive Date: 20201214
  Receipt Date: 20210324
  Transmission Date: 20210419
  Serious: Yes (Death, Hospitalization)
  Sender: FDA-Public Use
  Company Number: GB-ROCHE-2729198

PATIENT
  Age: 39 Year
  Sex: Male

DRUGS (13)
  1. PHENOBARBITAL. [Suspect]
     Active Substance: PHENOBARBITAL
     Indication: STATUS EPILEPTICUS
     Route: 065
  2. PROPOFOL. [Suspect]
     Active Substance: PROPOFOL
     Dosage: ALL SEDATION STOPPED 28/01
     Route: 042
  3. PREDNISOLONE. [Suspect]
     Active Substance: PREDNISOLONE
     Indication: STATUS EPILEPTICUS
     Dosage: HIGH DOSE PREDNISOLONE
     Route: 065
  4. THIOPENTONE [Suspect]
     Active Substance: THIOPENTAL SODIUM
     Indication: STATUS EPILEPTICUS
     Dosage: UP TO 4,80 MG/KG/H
     Route: 042
     Dates: start: 20161114, end: 20170109
  5. PROPOFOL. [Suspect]
     Active Substance: PROPOFOL
     Indication: STATUS EPILEPTICUS
     Dosage: ALL SEDATION STOPPED 28/01
     Route: 042
  6. MIDAZOLAM. [Suspect]
     Active Substance: MIDAZOLAM
     Indication: STATUS EPILEPTICUS
     Dosage: ALL SEDATION STOPPED 28/01
     Route: 042
  7. PHENYTOIN. [Suspect]
     Active Substance: PHENYTOIN
     Indication: STATUS EPILEPTICUS
     Route: 065
  8. TOPINA [Suspect]
     Active Substance: TOPIRAMATE
     Indication: STATUS EPILEPTICUS
     Route: 065
  9. DEPAKENE [Suspect]
     Active Substance: VALPROIC ACID
     Indication: STATUS EPILEPTICUS
     Route: 065
  10. LEVETIRACETAM. [Suspect]
     Active Substance: LEVETIRACETAM
     Indication: STATUS EPILEPTICUS
     Route: 065
  11. FENTANYL. [Suspect]
     Active Substance: FENTANYL
     Indication: STATUS EPILEPTICUS
     Dosage: ALL SEDATION STOPPED 28/01
     Route: 042
  12. FENTANYL. [Suspect]
     Active Substance: FENTANYL
     Dosage: ALL SEDATION STOPPED 28/01
     Route: 042
  13. CLONAZEPAM. [Suspect]
     Active Substance: CLONAZEPAM
     Indication: STATUS EPILEPTICUS
     Route: 065

REACTIONS (15)
  - Abdominal wall haematoma [Fatal]
  - Coagulopathy [Fatal]
  - Pseudomembranous colitis [Fatal]
  - Intensive care unit acquired weakness [Fatal]
  - Hepatitis fulminant [Fatal]
  - Acute kidney injury [Fatal]
  - Autonomic nervous system imbalance [Fatal]
  - Multiple organ dysfunction syndrome [Fatal]
  - Sepsis [Fatal]
  - Off label use [Unknown]
  - Metabolic acidosis [Fatal]
  - Malabsorption [Fatal]
  - Infection [Fatal]
  - Deep vein thrombosis [Fatal]
  - Colitis ischaemic [Fatal]
